FAERS Safety Report 8535536-5 (Version None)
Quarter: 2012Q3

REPORT INFORMATION
  Report Type: 
  Country: None (occurrence: None)
  Receive Date: 20120725
  Receipt Date: 20120720
  Transmission Date: 20120928
  Serious: Yes (Hospitalization, Other)
  Sender: FDA-Public Use
  Company Number: US-AMGEN-USASP2012045481

PATIENT
  Age: 51 Year
  Sex: Female

DRUGS (1)
  1. ENBREL [Suspect]
     Indication: RHEUMATOID ARTHRITIS
     Dosage: 50 MG, QWK
     Dates: start: 20000101

REACTIONS (14)
  - LYMPHADENECTOMY [None]
  - JOINT DESTRUCTION [None]
  - BREAST CANCER [None]
  - OVARIAN DISORDER [None]
  - RHEUMATOID ARTHRITIS [None]
  - TOOTH LOSS [None]
  - HYSTERECTOMY [None]
  - TEETH BRITTLE [None]
  - NEPHROLITHIASIS [None]
  - WEIGHT INCREASED [None]
  - DRUG EFFECT DECREASED [None]
  - JOINT RANGE OF MOTION DECREASED [None]
  - SALPINGO-OOPHORECTOMY BILATERAL [None]
  - MOBILITY DECREASED [None]
